FAERS Safety Report 25685805 (Version 1)
Quarter: 2025Q3

REPORT INFORMATION
  Report Type: Spontaneous
  Country: US (occurrence: US)
  Receive Date: 20250815
  Receipt Date: 20250815
  Transmission Date: 20251021
  Serious: Yes (Other)
  Sender: EDGEWELL PERSONAL CARE BRANDS
  Company Number: US-Edgewell Personal Care, LLC-2182567

PATIENT
  Age: 30 Year
  Sex: Female

DRUGS (1)
  1. BANANA BOAT (OCTINOXATE\PADIMATE O) [Suspect]
     Active Substance: OCTINOXATE\PADIMATE O
     Indication: Prophylaxis against solar radiation
     Dates: start: 20250722, end: 20250722

REACTIONS (2)
  - Burns third degree [Recovering/Resolving]
  - Blister [Recovering/Resolving]
